FAERS Safety Report 21561580 (Version 1)
Quarter: 2022Q4

REPORT INFORMATION
  Report Type: Spontaneous
  Country: US (occurrence: None)
  Receive Date: 20221106
  Receipt Date: 20221106
  Transmission Date: 20230113
  Serious: Yes (Other)
  Sender: FDA-Public Use
  Company Number: None

PATIENT
  Age: 78 Year
  Sex: Female
  Weight: 54 kg

DRUGS (1)
  1. LINZESS [Suspect]
     Active Substance: LINACLOTIDE
     Indication: Irritable bowel syndrome
     Dosage: OTHER STRENGTH : MCG;?OTHER QUANTITY : 1 CAPSULE(S);?
     Route: 048
     Dates: start: 20221026, end: 20221104

REACTIONS (2)
  - Rash pruritic [None]
  - Hypersensitivity [None]

NARRATIVE: CASE EVENT DATE: 20221104
